FAERS Safety Report 20541973 (Version 5)
Quarter: 2022Q3

REPORT INFORMATION
  Report Type: Report from Study
  Country: US (occurrence: US)
  Receive Date: 20220302
  Receipt Date: 20220721
  Transmission Date: 20221026
  Serious: No
  Sender: FDA-Public Use
  Company Number: US-NOVARTISTESTPH-NVSC2022US049730

PATIENT
  Sex: Female

DRUGS (3)
  1. PROMACTA [Suspect]
     Active Substance: ELTROMBOPAG OLAMINE
     Indication: Product used for unknown indication
     Dosage: UNK
     Route: 048
  2. PROMACTA [Suspect]
     Active Substance: ELTROMBOPAG OLAMINE
     Dosage: 100 MG, DAILY
     Route: 048
  3. PROMACTA [Suspect]
     Active Substance: ELTROMBOPAG OLAMINE
     Dosage: UNK (1 PILL PER DAY)
     Route: 065

REACTIONS (12)
  - Platelet count increased [Unknown]
  - Taste disorder [Unknown]
  - White blood cell count increased [Unknown]
  - Tooth injury [Unknown]
  - Emotional disorder [Unknown]
  - Eating disorder [Unknown]
  - Incorrect dose administered [Unknown]
  - Weight decreased [Unknown]
  - Platelet count decreased [Unknown]
  - Blood bilirubin increased [Unknown]
  - Yellow skin [Unknown]
  - Nausea [Unknown]
